FAERS Safety Report 4365908-4 (Version None)
Quarter: 2004Q2

REPORT INFORMATION
  Report Type: 
  Country: None (occurrence: None)
  Receive Date: 20040527
  Receipt Date: 20030506
  Transmission Date: 20050107
  Serious: No
  Sender: FDA-Public Use
  Company Number: US-BRISTOL-MYERS SQUIBB COMPANY-12267670

PATIENT
  Age: 64 Year
  Sex: Female
  Weight: 100 kg

DRUGS (7)
  1. KLOTRIX [Suspect]
     Indication: FLUID RETENTION
     Route: 048
  2. CARDIZEM [Concomitant]
  3. ZAROXOLYN [Concomitant]
  4. ISORDIL [Concomitant]
  5. LASIX [Concomitant]
  6. COUMADIN [Concomitant]
  7. INSULIN [Concomitant]

REACTIONS (1)
  - HYPERSENSITIVITY [None]
